FAERS Safety Report 5711768-6 (Version None)
Quarter: 2008Q2

REPORT INFORMATION
  Report Type: 
  Country: None (occurrence: None)
  Receive Date: 20080416
  Receipt Date: 20080404
  Transmission Date: 20081010
  Serious: Yes (Hospitalization)
  Sender: FDA-Public Use
  Company Number: PL-JNJFOC-20080401837

PATIENT
  Age: 67 Year
  Sex: Female

DRUGS (1)
  1. DECITABINE (DECITABINE) LYOPHILIZED POWDER [Suspect]
     Indication: ACUTE MYELOID LEUKAEMIA
     Dosage: INTRAVENOUS
     Route: 042

REACTIONS (2)
  - HERPES SIMPLEX [None]
  - ORAL HERPES [None]
